FAERS Safety Report 6570792-4 (Version None)
Quarter: 2010Q1

REPORT INFORMATION
  Report Type: 
  Country: None (occurrence: None)
  Receive Date: 20100204
  Receipt Date: 20100125
  Transmission Date: 20100710
  Serious: Yes (Hospitalization)
  Sender: FDA-Public Use
  Company Number: DE-BAXTER-2010BH001810

PATIENT
  Age: 60 Year
  Sex: Male
  Weight: 58 kg

DRUGS (6)
  1. SUPRANE [Suspect]
     Indication: INGUINAL HERNIA REPAIR
     Route: 055
     Dates: start: 20090930, end: 20090930
  2. ATORVASTATIN CALCIUM [Suspect]
     Indication: HYPERCHOLESTEROLAEMIA
     Route: 048
     Dates: start: 20090319, end: 20091026
  3. HYPERICUM EXTRACT [Suspect]
     Indication: MOOD ALTERED
     Route: 048
  4. PROPECIA [Suspect]
     Indication: ALOPECIA
     Route: 048
  5. ATRACURIUM [Concomitant]
     Indication: DRUG USE FOR UNKNOWN INDICATION
     Route: 048
     Dates: start: 20090930, end: 20090930
  6. VALERIAN EXTRACT [Concomitant]
     Indication: DRUG USE FOR UNKNOWN INDICATION
     Route: 048

REACTIONS (2)
  - DRUG INTERACTION [None]
  - HEPATITIS [None]
